FAERS Safety Report 6558564-8 (Version None)
Quarter: 2010Q1

REPORT INFORMATION
  Report Type: 
  Country: None (occurrence: None)
  Receive Date: 20100129
  Receipt Date: 20090317
  Transmission Date: 20100710
  Serious: No
  Sender: FDA-Public Use
  Company Number: A0773815A

PATIENT
  Age: 51 Year
  Sex: Female

DRUGS (2)
  1. MEPRON [Suspect]
     Indication: DRUG USE FOR UNKNOWN INDICATION
     Dosage: 4TSP PER DAY
     Route: 048
     Dates: start: 20080901, end: 20090307
  2. LARIAM [Concomitant]

REACTIONS (1)
  - HEADACHE [None]
